FAERS Safety Report 4428229-7 (Version None)
Quarter: 2004Q3

REPORT INFORMATION
  Report Type: 
  Country: None (occurrence: None)
  Receive Date: 20040726
  Receipt Date: 20040323
  Transmission Date: 20050211
  Serious: No
  Sender: FDA-Public Use
  Company Number: USA040362416

PATIENT
  Age: 51 Year
  Sex: Female

DRUGS (4)
  1. FORTEO [Suspect]
     Indication: OSTEOPOROSIS
     Dates: start: 20040101
  2. VIACTIV [Concomitant]
  3. CALCIUM WITH VITAMIN D [Concomitant]
  4. EFFEXOR [Concomitant]

REACTIONS (2)
  - INFECTION [None]
  - NAUSEA [None]
